FAERS Safety Report 8817970 (Version 2)
Quarter: 2012Q4

REPORT INFORMATION
  Report Type: 
  Country: US (occurrence: US)
  Receive Date: 20121001
  Receipt Date: 20121220
  Transmission Date: 20130627
  Serious: Yes (Hospitalization)
  Sender: FDA-Public Use
  Company Number: US-GILEAD-2012-0061953

PATIENT
  Age: 67 Year
  Sex: Male

DRUGS (2)
  1. LETAIRIS [Suspect]
     Indication: PULMONARY HYPERTENSION
     Dosage: 10 mg, QD
     Route: 048
     Dates: start: 20090303
  2. REVATIO [Concomitant]
     Dosage: 20 mg, UNK

REACTIONS (3)
  - Lung infection [Unknown]
  - Cardiovascular disorder [Unknown]
  - Dyspnoea [Unknown]
